FAERS Safety Report 21347975 (Version 1)
Quarter: 2022Q3

REPORT INFORMATION
  Report Type: Spontaneous
  Country: US (occurrence: US)
  Receive Date: 20220919
  Receipt Date: 20220919
  Transmission Date: 20221027
  Serious: Yes (Other)
  Sender: FDA-Public Use
  Company Number: US-TERSERA THERAPEUTICS LLC-2022TRS003477

PATIENT

DRUGS (3)
  1. XERMELO [Suspect]
     Active Substance: TELOTRISTAT ETHYL
     Indication: Gastrointestinal inflammation
     Dosage: 250 MG, TID (THREE TIMES A DAY)
     Route: 048
  2. XERMELO [Suspect]
     Active Substance: TELOTRISTAT ETHYL
     Indication: Colitis
  3. XERMELO [Suspect]
     Active Substance: TELOTRISTAT ETHYL
     Indication: Carcinoid tumour of the small bowel

REACTIONS (6)
  - Neuropathy peripheral [Not Recovered/Not Resolved]
  - Metastases to liver [Unknown]
  - Constipation [Unknown]
  - Gastrointestinal inflammation [Unknown]
  - Colitis [Unknown]
  - Off label use [Unknown]
